FAERS Safety Report 7152830-3 (Version None)
Quarter: 2010Q4

REPORT INFORMATION
  Report Type: 
  Country: None (occurrence: None)
  Receive Date: 20101213
  Receipt Date: 20101203
  Transmission Date: 20110411
  Serious: Yes (Hospitalization)
  Sender: FDA-Public Use
  Company Number: PHHY2010GR82196

PATIENT
  Age: 47 Year
  Sex: Female

DRUGS (1)
  1. EXTAVIA [Suspect]

REACTIONS (4)
  - ABDOMINAL CAVITY DRAINAGE [None]
  - ABDOMINAL WOUND DEHISCENCE [None]
  - INFLAMMATION [None]
  - LOCALISED OEDEMA [None]
